FAERS Safety Report 15454954 (Version 1)
Quarter: 2018Q3

REPORT INFORMATION
  Report Type: Spontaneous
  Country: US (occurrence: US)
  Receive Date: 20180927
  Receipt Date: 20180927
  Transmission Date: 20181010
  Serious: Yes (Hospitalization)
  Sender: FDA-Public Use
  Company Number: None

PATIENT
  Age: 2 Year
  Sex: Male
  Weight: 11.6 kg

DRUGS (4)
  1. MELPHALAN. [Suspect]
     Active Substance: MELPHALAN
     Dates: end: 20100221
  2. DOXORUBICIN HYDROCHLORIDE. [Suspect]
     Active Substance: DOXORUBICIN HYDROCHLORIDE
     Dates: end: 20090101
  3. ETOPOSIDE (VP?16) [Suspect]
     Active Substance: ETOPOSIDE
     Dates: end: 20100122
  4. CARBOPLATIN. [Suspect]
     Active Substance: CARBOPLATIN
     Dates: end: 20100122

REACTIONS (11)
  - Pyrexia [None]
  - Pleural effusion [None]
  - Tachypnoea [None]
  - Tachycardia [None]
  - Left ventricular dysfunction [None]
  - Respiratory failure [None]
  - Oxygen saturation decreased [None]
  - Hypertension [None]
  - Cardiac dysfunction [None]
  - Mental impairment [None]
  - Respiratory distress [None]

NARRATIVE: CASE EVENT DATE: 20100212
